FAERS Safety Report 10923860 (Version 1)
Quarter: 2015Q1

REPORT INFORMATION
  Report Type: Spontaneous
  Country: US (occurrence: None)
  Receive Date: 20150316
  Receipt Date: 20150316
  Transmission Date: 20150721
  Serious: No
  Sender: FDA-Public Use
  Company Number: None

PATIENT
  Age: 72 Year
  Sex: Female

DRUGS (2)
  1. LISINOPRIL. [Suspect]
     Active Substance: LISINOPRIL
     Indication: HYPERTENSION
     Dates: start: 20130922, end: 20131015
  2. LIPITOR [Suspect]
     Active Substance: ATORVASTATIN CALCIUM
     Indication: BLOOD CHOLESTEROL INCREASED
     Dates: start: 20130922, end: 20131015

REACTIONS (8)
  - Myalgia [None]
  - Acute myocardial infarction [None]
  - Aspartate aminotransferase increased [None]
  - Drug-induced liver injury [None]
  - Blood bilirubin increased [None]
  - Blood alkaline phosphatase increased [None]
  - Rash pruritic [None]
  - Alanine aminotransferase increased [None]

NARRATIVE: CASE EVENT DATE: 20131009
